FAERS Safety Report 6554719-7 (Version None)
Quarter: 2010Q1

REPORT INFORMATION
  Report Type: 
  Country: None (occurrence: None)
  Receive Date: 20100127
  Receipt Date: 20100112
  Transmission Date: 20100710
  Serious: Yes (Other)
  Sender: FDA-Public Use
  Company Number: US-PFIZER INC-2007004850

PATIENT
  Sex: Female
  Weight: 53.515 kg

DRUGS (17)
  1. CHANTIX [Suspect]
     Indication: SMOKING CESSATION THERAPY
     Dosage: 0.5 MG, 1X/DAY
     Route: 048
     Dates: start: 20090901
  2. CHANTIX [Suspect]
     Dosage: UNK
     Route: 048
     Dates: start: 20060101
  3. ZOLOFT [Suspect]
     Dosage: 100 MG, UNK
  4. CYMBALTA [Suspect]
     Indication: INSOMNIA
     Dosage: 60 MG, UNK
  5. ZYPREXA [Suspect]
     Indication: SLEEP DISORDER
     Dosage: 5 MG, 1X/DAY
     Route: 048
  6. VALSARTAN [Concomitant]
     Indication: HYPERTENSION
     Dosage: 160 MG, 1X/DAY
  7. KLONOPIN [Concomitant]
     Indication: ANXIETY
  8. NEURONTIN [Concomitant]
     Indication: BACK INJURY
     Dosage: 300 MG, 3X/DAY
  9. NEURONTIN [Concomitant]
     Indication: BACK PAIN
  10. ALBUTEROL SULFATE AUTOHALER [Concomitant]
     Indication: CHRONIC OBSTRUCTIVE PULMONARY DISEASE
     Dosage: 4X/DAY
  11. IPRATROPIUM BROMIDE [Concomitant]
     Indication: CHRONIC OBSTRUCTIVE PULMONARY DISEASE
     Dosage: UNK
  12. ATIVAN [Concomitant]
     Indication: ANXIETY
     Dosage: UNK
     Route: 048
  13. GABAPENTIN [Concomitant]
     Dosage: 300 MG, 3X/DAY
  14. ZOCOR [Concomitant]
     Indication: BLOOD CHOLESTEROL INCREASED
     Dosage: 40 MG, 2X/DAY
     Route: 048
  15. CELEXA [Concomitant]
     Indication: SLEEP DISORDER
     Dosage: 40 MG, 1X/DAY
     Route: 048
  16. CELEXA [Concomitant]
     Indication: DEPRESSION
     Dosage: 40 MG, 1X/DAY
  17. IBUPROFEN [Concomitant]
     Indication: ARTHRITIS
     Dosage: AS NEEDED
     Route: 048

REACTIONS (18)
  - ABDOMINAL DISTENSION [None]
  - ABNORMAL DREAMS [None]
  - ALLERGIC OEDEMA [None]
  - ANXIETY [None]
  - ASTHMA [None]
  - CONSTIPATION [None]
  - DIZZINESS [None]
  - DRUG HYPERSENSITIVITY [None]
  - EMOTIONAL DISORDER [None]
  - FATIGUE [None]
  - FEELING ABNORMAL [None]
  - FLUID RETENTION [None]
  - HEART RATE ABNORMAL [None]
  - MALAISE [None]
  - NAUSEA [None]
  - OEDEMA PERIPHERAL [None]
  - WEIGHT DECREASED [None]
  - WEIGHT INCREASED [None]
